FAERS Safety Report 26099395 (Version 1)
Quarter: 2025Q4

REPORT INFORMATION
  Report Type: Report from Study
  Country: US (occurrence: US)
  Receive Date: 20251128
  Receipt Date: 20251128
  Transmission Date: 20260118
  Serious: Yes (Other)
  Sender: ACADIA PHARMACEUTICALS
  Company Number: US-ACADIA PHARMACEUTICALS INC.-ACA-2025-PIM-012553

PATIENT
  Age: 71 Year
  Sex: Male

DRUGS (13)
  1. NUPLAZID [Suspect]
     Active Substance: PIMAVANSERIN TARTRATE
     Indication: Parkinson^s disease
     Dosage: 34 MILLIGRAM, QD
     Route: 048
     Dates: start: 20241204
  2. NUPLAZID [Suspect]
     Active Substance: PIMAVANSERIN TARTRATE
     Indication: Hallucination
  3. VITAMINS [Concomitant]
     Active Substance: VITAMINS
  4. VITAMIN C [Concomitant]
     Active Substance: ASCORBIC ACID
  5. IBUPROFEN [Concomitant]
     Active Substance: IBUPROFEN
  6. SINEMET [Concomitant]
     Active Substance: CARBIDOPA\LEVODOPA
  7. AMANTADINE [Concomitant]
     Active Substance: AMANTADINE
  8. BACLOFEN [Concomitant]
     Active Substance: BACLOFEN
  9. MELOXICAM [Concomitant]
     Active Substance: MELOXICAM
  10. ONGENTYS [Concomitant]
     Active Substance: OPICAPONE
  11. RASAGILINE [Concomitant]
     Active Substance: RASAGILINE
  12. ROPINIROLE [Concomitant]
     Active Substance: ROPINIROLE
  13. ZONISAMIDE [Concomitant]
     Active Substance: ZONISAMIDE

REACTIONS (2)
  - Pneumonia [Unknown]
  - Bronchitis [Unknown]

NARRATIVE: CASE EVENT DATE: 20251120
